FAERS Safety Report 25817714 (Version 2)
Quarter: 2025Q4

REPORT INFORMATION
  Report Type: Other
  Country: US (occurrence: US)
  Receive Date: 20250918
  Receipt Date: 20251113
  Transmission Date: 20260118
  Serious: Yes (Hospitalization)
  Sender: TRAVERE THERAPEUTICS
  Company Number: US-TRAVERE-2025TVT01662

PATIENT
  Sex: Male

DRUGS (13)
  1. FILSPARI [Suspect]
     Active Substance: SPARSENTAN
     Indication: IgA nephropathy
     Route: 048
     Dates: start: 20250501
  2. FLONASE [Concomitant]
     Active Substance: FLUTICASONE PROPIONATE
  3. TYLENOL [Concomitant]
     Active Substance: ACETAMINOPHEN
  4. ROCALTROL [Concomitant]
     Active Substance: CALCITRIOL
  5. ZYRTEC [Concomitant]
     Active Substance: CETIRIZINE HYDROCHLORIDE
  6. FLEXERIL [Concomitant]
     Active Substance: CYCLOBENZAPRINE HYDROCHLORIDE
  7. MUCINEX [Concomitant]
     Active Substance: GUAIFENESIN
  8. MAGNESIUM OXIDE [Concomitant]
     Active Substance: MAGNESIUM OXIDE
  9. CELLCEPT [Concomitant]
     Active Substance: MYCOPHENOLATE MOFETIL
  10. NITROSTAT [Concomitant]
     Active Substance: NITROGLYCERIN
  11. DELTASONE [Concomitant]
     Active Substance: PREDNISONE
  12. SUDAFED 12 HOUR [Concomitant]
     Active Substance: PSEUDOEPHEDRINE HYDROCHLORIDE
  13. DEMADEX [Concomitant]
     Active Substance: TORSEMIDE

REACTIONS (1)
  - Blood potassium increased [Recovering/Resolving]
